FAERS Safety Report 15740398 (Version 1)
Quarter: 2018Q4

REPORT INFORMATION
  Report Type: Spontaneous
  Country: US (occurrence: US)
  Receive Date: 20181219
  Receipt Date: 20181219
  Transmission Date: 20190205
  Serious: Yes (Other)
  Sender: FDA-Public Use
  Company Number: US-BTG-201800129

PATIENT
  Age: 13 Year
  Sex: Male

DRUGS (16)
  1. CROFAB [Suspect]
     Active Substance: CROTALIDAE POLYVALENT IMMUNE FAB (OVINE)
     Indication: SNAKE BITE
     Dosage: 2 VIALS, SINGLE
     Dates: start: 20181015
  2. DECADRON [Interacting]
     Active Substance: DEXAMETHASONE
     Indication: PRODUCT USED FOR UNKNOWN INDICATION
     Dosage: 8 MG, UNK
     Dates: start: 20181015
  3. CLINDAMYCIN. [Interacting]
     Active Substance: CLINDAMYCIN
     Indication: PYREXIA
     Dosage: UNK
     Dates: start: 20181020
  4. CROFAB [Suspect]
     Active Substance: CROTALIDAE POLYVALENT IMMUNE FAB (OVINE)
     Indication: SNAKE BITE
     Dosage: 1 VIALS, SINGLE
     Route: 051
     Dates: start: 20181014
  5. CROFAB [Suspect]
     Active Substance: CROTALIDAE POLYVALENT IMMUNE FAB (OVINE)
     Indication: SNAKE BITE
     Dosage: 3 VIALS, SINGLE
     Dates: start: 20181015
  6. CROFAB [Suspect]
     Active Substance: CROTALIDAE POLYVALENT IMMUNE FAB (OVINE)
     Indication: SNAKE BITE
     Dosage: 1 VIALS, SINGLE
     Dates: start: 20181015
  7. FRESH FROZEN PLASMA [Concomitant]
     Active Substance: HUMAN PLASMA
     Indication: PRODUCT USED FOR UNKNOWN INDICATION
     Dosage: 1 X 10 ML/KG
     Dates: start: 20181020
  8. VITAMIN K [Interacting]
     Active Substance: PHYTONADIONE
     Indication: COAGULOPATHY
     Dosage: 5 MG, QD
     Dates: start: 20181015
  9. CROFAB [Suspect]
     Active Substance: CROTALIDAE POLYVALENT IMMUNE FAB (OVINE)
     Indication: SNAKE BITE
     Dosage: 1 VIALS, SINGLE
     Dates: start: 20181016
  10. CROFAB [Suspect]
     Active Substance: CROTALIDAE POLYVALENT IMMUNE FAB (OVINE)
     Indication: SNAKE BITE
     Dosage: 2 VIALS, SINGLE
     Route: 051
     Dates: start: 20181014
  11. CROFAB [Suspect]
     Active Substance: CROTALIDAE POLYVALENT IMMUNE FAB (OVINE)
     Indication: SNAKE BITE
     Dosage: 2 VIALS, INITIAL DOSE
     Dates: start: 20181013
  12. CROFAB [Suspect]
     Active Substance: CROTALIDAE POLYVALENT IMMUNE FAB (OVINE)
     Indication: SNAKE BITE
     Dosage: 3 VIALS, SINGLE
     Dates: start: 20181016
  13. CROFAB [Suspect]
     Active Substance: CROTALIDAE POLYVALENT IMMUNE FAB (OVINE)
     Indication: SNAKE BITE
     Dosage: 4 VIALS, INITIAL DOSE
     Dates: start: 20181013
  14. CROFAB [Suspect]
     Active Substance: CROTALIDAE POLYVALENT IMMUNE FAB (OVINE)
     Indication: SNAKE BITE
     Dosage: 4 VIALS, SINGLE
     Dates: start: 20181019
  15. FRESH FROZEN PLASMA [Concomitant]
     Active Substance: HUMAN PLASMA
     Indication: PRODUCT USED FOR UNKNOWN INDICATION
     Dosage: 1 UNIT, UNK
     Dates: start: 20181019
  16. VITAMIN K [Interacting]
     Active Substance: PHYTONADIONE
     Indication: COAGULOPATHY
     Dosage: 1 MG, QD
     Dates: start: 20181015

REACTIONS (15)
  - Blood creatine phosphokinase increased [Recovered/Resolved]
  - Gingival bleeding [Recovered/Resolved]
  - Pyrexia [Recovered/Resolved]
  - Cellulitis [Unknown]
  - Coagulopathy [Recovering/Resolving]
  - Swelling [Recovering/Resolving]
  - Fasciitis [Unknown]
  - Hypokinesia [Recovering/Resolving]
  - Tenderness [Recovering/Resolving]
  - Ecchymosis [Recovering/Resolving]
  - Chromaturia [Recovered/Resolved]
  - Homans^ sign [Recovering/Resolving]
  - Pain in extremity [Recovering/Resolving]
  - Inappropriate schedule of product administration [Unknown]
  - Erythema [Recovering/Resolving]

NARRATIVE: CASE EVENT DATE: 20181013
